FAERS Safety Report 16430904 (Version 3)
Quarter: 2019Q3

REPORT INFORMATION
  Report Type: Spontaneous
  Country: US (occurrence: US)
  Receive Date: 20190614
  Receipt Date: 20190723
  Transmission Date: 20191004
  Serious: Yes (Hospitalization)
  Sender: FDA-Public Use
  Company Number: US-TORRENT-00008876

PATIENT
  Age: 39 Year
  Sex: Female
  Weight: 127 kg

DRUGS (2)
  1. SERTRALINE [Concomitant]
     Active Substance: SERTRALINE HYDROCHLORIDE
     Indication: ANXIETY
     Dosage: UNKNOWN
  2. HYDROCODONE BITARTRATE AND HOMATROPINE METHYLBROMIDE ORAL SOLUTION [Suspect]
     Active Substance: HOMATROPINE METHYLBROMIDE\HYDROCODONE BITARTRATE
     Indication: COUGH
     Dosage: ONLY ONCE
     Route: 048
     Dates: start: 20190524, end: 20190525

REACTIONS (6)
  - Hypoaesthesia [Recovered/Resolved]
  - Abnormal dreams [Recovered/Resolved]
  - Dizziness [Recovered/Resolved]
  - Pneumonia [Not Recovered/Not Resolved]
  - Headache [Recovered/Resolved]
  - Hallucination [Recovered/Resolved]

NARRATIVE: CASE EVENT DATE: 20190524
